FAERS Safety Report 9322989 (Version 4)
Quarter: 2013Q4

REPORT INFORMATION
  Report Type: Spontaneous
  Country: US (occurrence: US)
  Receive Date: 20130603
  Receipt Date: 20131213
  Transmission Date: 20140711
  Serious: Yes (Hospitalization)
  Sender: FDA-Public Use
  Company Number: US-B.I. PHARMACEUTICALS,INC./RIDGEFIELD-2013-BI-14855BP

PATIENT
  Age: 58 Year
  Sex: Male
  Weight: 147.42 kg

DRUGS (12)
  1. PRADAXA [Suspect]
     Indication: ATRIAL FIBRILLATION
     Dosage: 300 MG
     Route: 048
     Dates: start: 20110420, end: 20120528
  2. ASPIRIN [Suspect]
     Dosage: 162 MG
     Route: 048
  3. MULTAQ [Suspect]
     Dosage: 800 MG
     Route: 048
  4. DIGOXIN [Concomitant]
     Dosage: 0.25 MG
     Route: 048
  5. DILTIAZEM [Concomitant]
     Dosage: 360 MG
     Route: 048
  6. PROAIR HFA [Concomitant]
  7. NYSTATIN [Concomitant]
     Dates: start: 2010, end: 2013
  8. CEPHALEXIN [Concomitant]
  9. ADVAIR [Concomitant]
     Dates: start: 2009, end: 2011
  10. AMOX TR-K CLV [Concomitant]
     Dates: start: 2010, end: 2013
  11. METOPROLOL SUCCINATE [Concomitant]
  12. ALPRAZOLAM [Concomitant]
     Dates: start: 2011, end: 2013

REACTIONS (1)
  - Gastrointestinal haemorrhage [Unknown]
